FAERS Safety Report 23478483 (Version 1)
Quarter: 2024Q1

REPORT INFORMATION
  Report Type: Report from Study
  Country: US (occurrence: US)
  Receive Date: 20240204
  Receipt Date: 20240204
  Transmission Date: 20240410
  Serious: No
  Sender: FDA-Public Use
  Company Number: US-EXELIXIS-CABO-23069739

PATIENT
  Sex: Female

DRUGS (13)
  1. CABOMETYX [Suspect]
     Active Substance: CABOZANTINIB S-MALATE
     Indication: Squamous cell carcinoma of the oral cavity
     Dosage: 40 MG, QD
     Dates: start: 20231003
  2. VERAPAMIL [Concomitant]
     Active Substance: VERAPAMIL HYDROCHLORIDE
     Dosage: UNK
  3. LISINOPRIL [Concomitant]
     Active Substance: LISINOPRIL
     Dosage: UNK
  4. LEVOTHYROXINE [Concomitant]
     Active Substance: LEVOTHYROXINE\LEVOTHYROXINE SODIUM
     Dosage: UNK
  5. CALCIUM [Concomitant]
     Active Substance: CALCIUM
     Dosage: UNK
  6. POTASSIUM [Concomitant]
     Active Substance: POTASSIUM
     Dosage: UNK
  7. FERROUS SULFATE [Concomitant]
     Active Substance: FERROUS SULFATE
     Dosage: UNK
  8. VITAMIN B12 [Concomitant]
     Active Substance: CYANOCOBALAMIN
     Dosage: UNK
  9. ROSUVASTATIN [Concomitant]
     Active Substance: ROSUVASTATIN
     Dosage: UNK
  10. FLUOXETINE [Concomitant]
     Active Substance: FLUOXETINE HYDROCHLORIDE
     Dosage: UNK
  11. DIETARY SUPPLEMENT [Concomitant]
     Active Substance: DIETARY SUPPLEMENT
     Dosage: UNK
  12. PANTOPRAZOLE [Concomitant]
     Active Substance: PANTOPRAZOLE
     Dosage: UNK
  13. MAGNESIUM [Concomitant]
     Active Substance: MAGNESIUM
     Dosage: UNK

REACTIONS (5)
  - Fatigue [Unknown]
  - Weight decreased [Unknown]
  - Oropharyngeal pain [Unknown]
  - Decreased appetite [Unknown]
  - Off label use [Unknown]
